FAERS Safety Report 25102960 (Version 1)
Quarter: 2025Q1

REPORT INFORMATION
  Report Type: Spontaneous
  Country: US (occurrence: US)
  Receive Date: 20250321
  Receipt Date: 20250321
  Transmission Date: 20250409
  Serious: Yes (Life-Threatening, Hospitalization, Other)
  Sender: RANBAXY
  Company Number: US-SUN PHARMACEUTICAL INDUSTRIES LTD-2025R1-499934

PATIENT
  Age: 42 Year
  Sex: Female

DRUGS (1)
  1. NIMODIPINE [Suspect]
     Active Substance: NIMODIPINE
     Indication: Hypertension
     Route: 065

REACTIONS (2)
  - Aphasia [Recovered/Resolved]
  - Hemiplegia [Recovered/Resolved]
